FAERS Safety Report 5121809-5 (Version None)
Quarter: 2006Q4

REPORT INFORMATION
  Report Type: 
  Country: None (occurrence: None)
  Receive Date: 20061006
  Receipt Date: 20060901
  Transmission Date: 20070319
  Serious: Yes (Death)
  Sender: FDA-Public Use
  Company Number: PT-AVENTIS-200614629EU

PATIENT
  Age: 78 Year
  Sex: Male
  Weight: 60 kg

DRUGS (14)
  1. LOVENOX [Suspect]
     Indication: PULMONARY EMBOLISM
     Route: 058
     Dates: start: 20060726, end: 20060729
  2. AMOXICILLIN/CLAVULANIC ACID [Concomitant]
  3. PREDNISOLONE [Concomitant]
  4. FUROSEMIDE [Concomitant]
  5. ATENOLOL [Concomitant]
  6. ISOSORBIDE MONONITRATE [Concomitant]
  7. CAPTOPRIL [Concomitant]
  8. ALLOPURINOL [Concomitant]
  9. DOPAMINE [Concomitant]
  10. ACETYLCYSTEINE [Concomitant]
  11. OMEPRAZOLE [Concomitant]
  12. HYDROXYZINE [Concomitant]
  13. ASPIRIN [Concomitant]
  14. ACETAMINOPHEN [Concomitant]

REACTIONS (3)
  - HAEMORRHAGE [None]
  - HYPOVOLAEMIC SHOCK [None]
  - MUSCLE HAEMORRHAGE [None]
